FAERS Safety Report 8332904-1 (Version None)
Quarter: 2012Q2

REPORT INFORMATION
  Report Type: 
  Country: None (occurrence: None)
  Receive Date: 20120503
  Receipt Date: 20120425
  Transmission Date: 20120825
  Serious: Yes (Hospitalization)
  Sender: FDA-Public Use
  Company Number: US-UCBSA-053575

PATIENT
  Age: 30 Year
  Sex: Male

DRUGS (7)
  1. METRONIDAZOLE [Concomitant]
     Indication: PERIRECTAL ABSCESS
     Route: 048
  2. PREDNISONE [Concomitant]
     Indication: CROHN'S DISEASE
     Route: 048
  3. CIMZIA [Suspect]
     Indication: CROHN'S DISEASE
     Route: 058
     Dates: start: 20090904
  4. PREDNISONE [Concomitant]
     Route: 048
  5. PREDNISONE [Concomitant]
     Route: 048
  6. PREDNISONE [Concomitant]
     Route: 048
  7. FE GLUCONATE [Concomitant]
     Indication: ANAEMIA
     Route: 048

REACTIONS (3)
  - GASTROINTESTINAL INFLAMMATION [None]
  - SMALL INTESTINAL OBSTRUCTION [None]
  - PERIRECTAL ABSCESS [None]
